FAERS Safety Report 15670382 (Version 2)
Quarter: 2019Q1

REPORT INFORMATION
  Report Type: Spontaneous
  Country: US (occurrence: US)
  Receive Date: 20181129
  Receipt Date: 20190318
  Transmission Date: 20190417
  Serious: Yes (Death, Hospitalization)
  Sender: FDA-Public Use
  Company Number: US-PFIZER INC-2018488630

PATIENT
  Age: 57 Year
  Sex: Male

DRUGS (3)
  1. ZOSYN [Suspect]
     Active Substance: PIPERACILLIN SODIUM\TAZOBACTAM SODIUM
     Dosage: UNK
     Route: 042
  2. LOVENOX [Suspect]
     Active Substance: ENOXAPARIN SODIUM
     Indication: PULMONARY EMBOLISM
     Dosage: 100 MG, 2X/DAY [EVERY TWELVE HOURS]
     Route: 058
     Dates: start: 20181010
  3. LOVENOX [Suspect]
     Active Substance: ENOXAPARIN SODIUM
     Indication: THROMBOSIS

REACTIONS (5)
  - Tracheal disorder [Fatal]
  - Dyspnoea [Recovered/Resolved]
  - Cough [Recovered/Resolved]
  - Dysphonia [Recovered/Resolved]
  - Stridor [Recovered/Resolved]

NARRATIVE: CASE EVENT DATE: 20181010
